FAERS Safety Report 18440097 (Version 1)
Quarter: 2020Q4

REPORT INFORMATION
  Report Type: Spontaneous
  Country: US (occurrence: US)
  Receive Date: 20201028
  Receipt Date: 20201028
  Transmission Date: 20210114
  Serious: Yes (Other)
  Sender: FDA-Public Use
  Company Number: None

PATIENT
  Age: 79 Year
  Sex: Female
  Weight: 69.75 kg

DRUGS (28)
  1. ASPIRIN CHEWABLE [Concomitant]
     Active Substance: ASPIRIN
  2. ESTRADIOL. [Concomitant]
     Active Substance: ESTRADIOL
  3. IRBESARTAN. [Concomitant]
     Active Substance: IRBESARTAN
  4. NITROGLYCERIN SUBLINGUAL TABLETS [Concomitant]
  5. AMPICILLIN 500 MG CAPSULE [Suspect]
     Active Substance: AMPICILLIN
     Indication: URINARY TRACT DISORDER
     Dosage: ?          QUANTITY:28 CAPSULE(S);?
     Route: 048
     Dates: start: 20201018, end: 20201021
  6. IPATROPRIUM SPRAY [Concomitant]
  7. PSYLLIUM HUSKS CAPS (YERBA PRIMA) SUPPLEMENT [Concomitant]
  8. SENIOR MULTIVITAMIN [Concomitant]
  9. VITAMIN B-50 [Concomitant]
  10. CARVEDILOL. [Concomitant]
     Active Substance: CARVEDILOL
  11. SODIUM [Concomitant]
     Active Substance: SODIUM
  12. MULTIMINERAL [Concomitant]
  13. FLUTICASONE NASAL [Concomitant]
     Active Substance: FLUTICASONE
  14. NITROGLYCERIN. [Concomitant]
     Active Substance: NITROGLYCERIN
  15. QVAAR INHALER [Concomitant]
  16. DME: SOMNODENT DENTAL DEVICE [Concomitant]
  17. MAGNESIUM GLUCONATE [Concomitant]
     Active Substance: MAGNESIUM GLUCONATE
  18. VITAMIN D3 [Concomitant]
     Active Substance: CHOLECALCIFEROL
  19. DILTIAZEM/CARDIAZEM [Concomitant]
  20. DME OXYGEN CONCENTRATOR [Concomitant]
  21. ACETAMINOPHEN. [Concomitant]
     Active Substance: ACETAMINOPHEN
  22. L-ARGININE POWDER SUPPLEMENT [Concomitant]
  23. COQ10 CAPSULE [Concomitant]
  24. DOCUSATE [Concomitant]
     Active Substance: DOCUSATE
  25. VAGINAL [Concomitant]
  26. L-ALBUTEROL INHALER [Concomitant]
  27. LEVOTHYROXINE. [Concomitant]
     Active Substance: LEVOTHYROXINE
  28. SUCRALFATE. [Concomitant]
     Active Substance: SUCRALFATE

REACTIONS (1)
  - Drug eruption [None]

NARRATIVE: CASE EVENT DATE: 20201021
